FAERS Safety Report 16679620 (Version 1)
Quarter: 2019Q3

REPORT INFORMATION
  Report Type: Spontaneous
  Country: GB (occurrence: GB)
  Receive Date: 20190807
  Receipt Date: 20190807
  Transmission Date: 20191004
  Serious: Yes (Other)
  Sender: FDA-Public Use
  Company Number: GB-TEVA-2019-GB-1089328

PATIENT
  Age: 44 Year
  Sex: Female
  Weight: 71 kg

DRUGS (3)
  1. ATOMOXETINE. [Suspect]
     Active Substance: ATOMOXETINE HYDROCHLORIDE
     Indication: ATTENTION DEFICIT/HYPERACTIVITY DISORDER
     Dosage: 100MG
     Route: 048
     Dates: start: 20190401
  2. ESTRADIOL. [Concomitant]
     Active Substance: ESTRADIOL
     Dosage: 2MG
  3. STRATTERA [Suspect]
     Active Substance: ATOMOXETINE HYDROCHLORIDE
     Route: 065

REACTIONS (2)
  - Vision blurred [Not Recovered/Not Resolved]
  - Eczema eyelids [Not Recovered/Not Resolved]

NARRATIVE: CASE EVENT DATE: 20190501
